FAERS Safety Report 8295693-5 (Version None)
Quarter: 2012Q2

REPORT INFORMATION
  Report Type: 
  Country: None (occurrence: None)
  Receive Date: 20120416
  Receipt Date: 20120403
  Transmission Date: 20120825
  Serious: Yes (Other)
  Sender: FDA-Public Use
  Company Number: 2012HGS-003487

PATIENT
  Age: 56 Year
  Sex: Female
  Weight: 62 kg

DRUGS (10)
  1. NITRO-DUR [Concomitant]
  2. BENLYSTA [Suspect]
     Indication: SYSTEMIC LUPUS ERYTHEMATOSUS
     Dosage: 10 MG/KG, INTRAVENOUS (NOT OTHERWISE SPECIFIED)
     Route: 042
     Dates: start: 20120312, end: 20120312
  3. VITAMIN D (ERGOCALCIFEROL) (ERGOCALCIFEROL) [Concomitant]
  4. CRESTOR [Concomitant]
  5. NITRO (GLYCERYL TRINITRATE) (GLYCERYL TRINITRATE) [Concomitant]
  6. VERAPAMIL [Concomitant]
  7. ELAVIL (AMITRIPTYLINE HYDROCHLORIDE) (AMITRIPTYLINE HYDROCHLORIDE) [Concomitant]
  8. VENTOLIN (SALBUTAMOL) (SALBUTAMOL) [Concomitant]
  9. CALCIUM (CALCIUM) (CALCIUM) [Concomitant]
  10. ESOMEPRAZOLE SODIUM [Concomitant]

REACTIONS (11)
  - MYALGIA [None]
  - BODY TEMPERATURE INCREASED [None]
  - NASAL CONGESTION [None]
  - CHEST DISCOMFORT [None]
  - DYSPEPSIA [None]
  - ASTHMA [None]
  - ABDOMINAL PAIN UPPER [None]
  - PRODUCTIVE COUGH [None]
  - NASOPHARYNGITIS [None]
  - HEADACHE [None]
  - INFLUENZA LIKE ILLNESS [None]
